FAERS Safety Report 12329423 (Version 5)
Quarter: 2016Q2

REPORT INFORMATION
  Report Type: Spontaneous
  Country: BR (occurrence: BR)
  Receive Date: 20160503
  Receipt Date: 20160616
  Transmission Date: 20160815
  Serious: Yes (Death, Hospitalization)
  Sender: FDA-Public Use
  Company Number: BR-CELGENEUS-BRA-2016045138

PATIENT
  Age: 70 Year
  Sex: Male
  Weight: 74.5 kg

DRUGS (1)
  1. VIDAZA [Suspect]
     Active Substance: AZACITIDINE
     Indication: MYELODYSPLASTIC SYNDROME
     Route: 058
     Dates: end: 20151202

REACTIONS (4)
  - Pancreatitis acute [Recovered/Resolved]
  - Pneumonia [Recovered/Resolved]
  - Urosepsis [Fatal]
  - Pancreatitis acute [Recovered/Resolved]

NARRATIVE: CASE EVENT DATE: 20151208
